FAERS Safety Report 23396740 (Version 3)
Quarter: 2024Q1

REPORT INFORMATION
  Report Type: Spontaneous
  Country: PL (occurrence: PL)
  Receive Date: 20240112
  Receipt Date: 20240130
  Transmission Date: 20240409
  Serious: Yes (Hospitalization)
  Sender: FDA-Public Use
  Company Number: PL-MYLANLABS-2024M1002754

PATIENT
  Age: 29 Year
  Sex: Female

DRUGS (15)
  1. CLARITHROMYCIN [Suspect]
     Active Substance: CLARITHROMYCIN
     Indication: Cough
     Dosage: UNK
     Route: 065
  2. CLARITHROMYCIN [Suspect]
     Active Substance: CLARITHROMYCIN
     Indication: Rhinorrhoea
  3. CLARITHROMYCIN [Suspect]
     Active Substance: CLARITHROMYCIN
     Indication: Pyrexia
  4. CLARITHROMYCIN [Suspect]
     Active Substance: CLARITHROMYCIN
     Indication: Chest pain
  5. CLARITHROMYCIN [Suspect]
     Active Substance: CLARITHROMYCIN
     Indication: Pneumonia
  6. AMOXICILLIN\CLAVULANIC ACID [Suspect]
     Active Substance: AMOXICILLIN\CLAVULANIC ACID
     Indication: Cough
     Dosage: UNK
     Route: 065
  7. AMOXICILLIN\CLAVULANIC ACID [Suspect]
     Active Substance: AMOXICILLIN\CLAVULANIC ACID
     Indication: Rhinorrhoea
  8. AMOXICILLIN\CLAVULANIC ACID [Suspect]
     Active Substance: AMOXICILLIN\CLAVULANIC ACID
     Indication: Pyrexia
  9. AMOXICILLIN\CLAVULANIC ACID [Suspect]
     Active Substance: AMOXICILLIN\CLAVULANIC ACID
     Indication: Chest pain
  10. AMOXICILLIN\CLAVULANIC ACID [Suspect]
     Active Substance: AMOXICILLIN\CLAVULANIC ACID
     Indication: Pneumonia
  11. CEFUROXIME [Suspect]
     Active Substance: CEFUROXIME
     Indication: Cough
     Dosage: UNK
     Route: 048
  12. CEFUROXIME [Suspect]
     Active Substance: CEFUROXIME
     Indication: Rhinorrhoea
  13. CEFUROXIME [Suspect]
     Active Substance: CEFUROXIME
     Indication: Pyrexia
  14. CEFUROXIME [Suspect]
     Active Substance: CEFUROXIME
     Indication: Chest pain
  15. CEFUROXIME [Suspect]
     Active Substance: CEFUROXIME
     Indication: Pneumonia

REACTIONS (6)
  - Disease progression [Unknown]
  - Hypertension [Not Recovered/Not Resolved]
  - Drug ineffective [Not Recovered/Not Resolved]
  - Live birth [Recovered/Resolved]
  - Maternal exposure during pregnancy [Unknown]
  - Anaemia [Unknown]
